FAERS Safety Report 13402897 (Version 1)
Quarter: 2017Q2

REPORT INFORMATION
  Report Type: Spontaneous
  Country: US (occurrence: US)
  Receive Date: 20170404
  Receipt Date: 20170404
  Transmission Date: 20170830
  Serious: Yes (Hospitalization)
  Sender: FDA-Public Use
  Company Number: US-ROCHE-1757999

PATIENT
  Age: 86 Year
  Sex: Female

DRUGS (9)
  1. OXYCODONE [Concomitant]
     Active Substance: OXYCODONE
  2. RITALIN [Concomitant]
     Active Substance: METHYLPHENIDATE HYDROCHLORIDE
  3. FLUOROURACIL. [Concomitant]
     Active Substance: FLUOROURACIL
  4. AVASTIN [Suspect]
     Active Substance: BEVACIZUMAB
     Indication: COLON CANCER
     Route: 065
     Dates: start: 201511
  5. SYNTHROID [Concomitant]
     Active Substance: LEVOTHYROXINE SODIUM
  6. ZOLOFT [Suspect]
     Active Substance: SERTRALINE HYDROCHLORIDE
     Indication: PRODUCT USED FOR UNKNOWN INDICATION
     Route: 065
  7. XANAX [Suspect]
     Active Substance: ALPRAZOLAM
     Indication: PRODUCT USED FOR UNKNOWN INDICATION
     Route: 065
  8. OXALIPLATIN. [Concomitant]
     Active Substance: OXALIPLATIN
  9. FOLINIC ACID [Concomitant]
     Active Substance: LEUCOVORIN

REACTIONS (1)
  - Colitis [Unknown]

NARRATIVE: CASE EVENT DATE: 201603
